FAERS Safety Report 5445942-3 (Version None)
Quarter: 2007Q3

REPORT INFORMATION
  Report Type: 
  Country: None (occurrence: None)
  Receive Date: 20070904
  Receipt Date: 20070828
  Transmission Date: 20080115
  Serious: Yes (Death, Hospitalization, Other)
  Sender: FDA-Public Use
  Company Number: 2006SP006092

PATIENT
  Age: 71 Year
  Sex: Male
  Weight: 55 kg

DRUGS (5)
  1. TEMODAL [Suspect]
     Indication: GLIOBLASTOMA MULTIFORME
     Dosage: 150 MCG/M2; QD; PO
     Route: 048
     Dates: start: 20061004, end: 20061008
  2. TEMODAL [Suspect]
     Indication: RECURRENT CANCER
     Dosage: 150 MCG/M2; QD; PO
     Route: 048
     Dates: start: 20061004, end: 20061008
  3. RINDERON [Concomitant]
  4. RINDERON [Concomitant]
  5. PHENOBARBITAL TAB [Concomitant]

REACTIONS (13)
  - C-REACTIVE PROTEIN INCREASED [None]
  - CONDITION AGGRAVATED [None]
  - DELIRIUM [None]
  - DISEASE PROGRESSION [None]
  - ENTEROCOLITIS BACTERIAL [None]
  - ESCHERICHIA INFECTION [None]
  - GLIOBLASTOMA MULTIFORME [None]
  - HYDROCEPHALUS [None]
  - INFECTION IN AN IMMUNOCOMPROMISED HOST [None]
  - NEUROLOGICAL SYMPTOM [None]
  - NEUTROPHIL PERCENTAGE INCREASED [None]
  - PLATELET COUNT DECREASED [None]
  - WHITE BLOOD CELL COUNT INCREASED [None]
